FAERS Safety Report 8461207-X (Version None)
Quarter: 2012Q2

REPORT INFORMATION
  Report Type: 
  Country: None (occurrence: None)
  Receive Date: 20120618
  Receipt Date: 20120618
  Transmission Date: 20120825
  Serious: Yes (Other)
  Sender: FDA-Public Use
  Company Number: None

PATIENT
  Sex: Female

DRUGS (1)
  1. TOPIRAMATE [Suspect]
     Indication: MIGRAINE
     Dosage: 200 MG ONCE A DAY PO
     Route: 048
     Dates: start: 20110105, end: 20111005

REACTIONS (4)
  - RASH [None]
  - PARAESTHESIA [None]
  - PRURITUS [None]
  - TEMPERATURE INTOLERANCE [None]
